FAERS Safety Report 8792029 (Version 2)
Quarter: 2012Q4

REPORT INFORMATION
  Report Type: 
  Country: FR (occurrence: FR)
  Receive Date: 20120918
  Receipt Date: 20121005
  Transmission Date: 20130627
  Serious: Yes (Life-Threatening, Other)
  Sender: FDA-Public Use
  Company Number: FR-PFIZER INC-2012227468

PATIENT
  Age: 81 Year
  Sex: Female
  Weight: 70 kg

DRUGS (10)
  1. ATORVASTATINE PFIZER [Suspect]
     Indication: HYPERCHOLESTEROLAEMIA
     Dosage: 10 mg, 1x/day
     Route: 048
     Dates: start: 20120903, end: 20120912
  2. ESOMEPRAZOLE [Suspect]
     Indication: DYSPEPSIA
     Dosage: 1 DF, 1x/day
     Route: 048
     Dates: start: 20120903, end: 20120912
  3. METEOSPASMYL [Concomitant]
     Indication: CONSTIPATION
     Dosage: 3 DF per day
     Route: 048
     Dates: start: 20120903
  4. SPASFON-LYOC [Concomitant]
     Indication: ABDOMINAL PAIN
     Dosage: 1 to 3 tablets per day
     Route: 048
     Dates: start: 2010
  5. STRUCTOFLEX [Concomitant]
     Indication: OSTEOARTHRITIS
     Dosage: 2 DF, 2x/day
     Route: 048
     Dates: start: 20111003
  6. DAFALGAN [Concomitant]
     Indication: PAIN
     Dosage: 1 g, 4x/day
     Route: 048
  7. AVLOCARDYL [Concomitant]
     Indication: CARDIAC DISORDER
     Dosage: 1 DF, 1x/day
     Route: 048
  8. LEXOMIL [Concomitant]
     Indication: DEPRESSION
     Dosage: 1 DF, 1x/day
     Route: 048
  9. LEXOMIL [Concomitant]
     Indication: INSOMNIA
  10. KARDEGIC [Concomitant]
     Indication: CARDIAC DISORDER
     Dosage: 1 DF, 1x/day
     Route: 048
     Dates: start: 20101014

REACTIONS (5)
  - Hypersensitivity [Recovered/Resolved]
  - Lip swelling [Recovered/Resolved]
  - Paraesthesia oral [Recovered/Resolved]
  - Paraesthesia [Recovered/Resolved]
  - Choking sensation [Recovered/Resolved]
